FAERS Safety Report 21408300 (Version 1)
Quarter: 2022Q4

REPORT INFORMATION
  Report Type: Report from Study
  Country: GB (occurrence: GB)
  Receive Date: 20221004
  Receipt Date: 20221004
  Transmission Date: 20230113
  Serious: Yes (Hospitalization, Other)
  Sender: FDA-Public Use
  Company Number: GB-TAKEDA-GB201707215

PATIENT
  Age: 9 Year
  Sex: Male

DRUGS (75)
  1. IDURSULFASE [Suspect]
     Active Substance: IDURSULFASE
     Indication: Mucopolysaccharidosis II
     Dosage: 0.55 MILLIGRAM/KILOGRAM, 1/WEEK
     Route: 041
     Dates: start: 20070404
  2. IDURSULFASE [Suspect]
     Active Substance: IDURSULFASE
     Dosage: 0.55 MILLIGRAM/KILOGRAM, 1/WEEK
     Route: 041
     Dates: start: 20120315
  3. IDURSULFASE [Suspect]
     Active Substance: IDURSULFASE
     Dosage: 0.5 MILLIGRAM/KILOGRAM, 1/WEEK
     Route: 041
     Dates: start: 20080923
  4. IDURSULFASE [Suspect]
     Active Substance: IDURSULFASE
     Dosage: 0.55 MILLIGRAM/KILOGRAM, 1/WEEK
     Route: 042
     Dates: start: 20120315, end: 20140102
  5. MELATONIN [Concomitant]
     Active Substance: MELATONIN
     Indication: Nervous system disorder
     Dosage: UNK
     Route: 048
     Dates: start: 2002, end: 2011
  6. CEPHRADINE [Concomitant]
     Active Substance: CEPHRADINE
     Indication: Anti-infective therapy
     Dosage: UNK
     Route: 048
     Dates: start: 200303, end: 200303
  7. TRIMETHOPRIM [Concomitant]
     Active Substance: TRIMETHOPRIM
     Indication: Anti-infective therapy
     Dosage: UNK
     Route: 048
     Dates: start: 200303, end: 200303
  8. DICLOFENAC [Concomitant]
     Active Substance: DICLOFENAC
     Indication: Pain
     Dosage: UNK
     Route: 048
     Dates: start: 20030403, end: 20030406
  9. ONDANSETRON [Concomitant]
     Active Substance: ONDANSETRON
     Indication: Gastrointestinal disorder
     Dosage: UNK
     Route: 048
     Dates: start: 20030403, end: 20030404
  10. CODEINE PHOSPHATE [Concomitant]
     Active Substance: CODEINE PHOSPHATE
     Indication: Pain
     Dosage: UNK
     Route: 048
     Dates: start: 20040405, end: 20040405
  11. CODEINE PHOSPHATE [Concomitant]
     Active Substance: CODEINE PHOSPHATE
     Dosage: UNK
     Route: 048
     Dates: start: 20030404, end: 20030404
  12. BECLOMETHASONE DIPROPIONATE [Concomitant]
     Active Substance: BECLOMETHASONE DIPROPIONATE
     Indication: Respiratory disorder
     Dosage: UNK
     Route: 050
     Dates: start: 20030520, end: 20050412
  13. PREDNISOLONE [Concomitant]
     Active Substance: PREDNISOLONE
     Indication: Respiratory disorder
     Dosage: UNK
     Route: 048
     Dates: start: 20030520, end: 20030525
  14. PREDNISOLONE [Concomitant]
     Active Substance: PREDNISOLONE
     Dosage: UNK
     Route: 048
     Dates: start: 20050412, end: 20050417
  15. ALBUTEROL [Concomitant]
     Active Substance: ALBUTEROL
     Indication: Respiratory disorder
     Dosage: UNK
     Route: 050
     Dates: start: 20030520, end: 20050412
  16. ALBUTEROL [Concomitant]
     Active Substance: ALBUTEROL
     Dosage: UNK
     Route: 055
     Dates: start: 20050412, end: 20050420
  17. CIPROFLOXACIN [Concomitant]
     Active Substance: CIPROFLOXACIN
     Indication: Anti-infective therapy
     Dosage: UNK
     Route: 048
     Dates: start: 20030930, end: 2003
  18. AUGMENTIN [Concomitant]
     Active Substance: AMOXICILLIN\CLAVULANATE POTASSIUM
     Indication: Anti-infective therapy
     Dosage: UNK
     Route: 048
     Dates: start: 20030930, end: 2003
  19. ACETAMINOPHEN [Concomitant]
     Active Substance: ACETAMINOPHEN
     Indication: Pain
     Dosage: UNK
     Route: 048
     Dates: start: 200311, end: 2007
  20. ACETAMINOPHEN [Concomitant]
     Active Substance: ACETAMINOPHEN
     Dosage: UNK
     Route: 048
     Dates: start: 20040405, end: 20040405
  21. LACTULOSE [Concomitant]
     Active Substance: LACTULOSE
     Indication: Gastrointestinal disorder
     Dosage: UNK
     Route: 048
     Dates: start: 2004, end: 2004
  22. SENNA [Concomitant]
     Active Substance: SENNA LEAF\SENNOSIDES\SENNOSIDES A AND B
     Indication: Gastrointestinal disorder
     Dosage: UNK
     Route: 048
     Dates: start: 2004, end: 200403
  23. AMOXICILLIN [Concomitant]
     Active Substance: AMOXICILLIN
     Indication: Anti-infective therapy
     Dosage: UNK
     Route: 042
     Dates: start: 20040405, end: 20040405
  24. FLUCLOXACILLIN [Concomitant]
     Active Substance: FLUCLOXACILLIN
     Indication: Anti-infective therapy
     Dosage: UNK
     Route: 042
     Dates: start: 20040405, end: 20040405
  25. BUDESONIDE [Concomitant]
     Active Substance: BUDESONIDE
     Indication: Respiratory disorder
     Dosage: UNK
     Route: 050
     Dates: start: 2005, end: 20070522
  26. BUDESONIDE [Concomitant]
     Active Substance: BUDESONIDE
     Dosage: UNK
     Route: 055
     Dates: start: 20050412, end: 20050420
  27. BUDESONIDE [Concomitant]
     Active Substance: BUDESONIDE
     Dosage: UNK
     Route: 055
     Dates: start: 20050420, end: 2005
  28. LORATADINE [Concomitant]
     Active Substance: LORATADINE
     Indication: Respiratory disorder
     Dosage: UNK
     Route: 048
     Dates: start: 2005, end: 20050725
  29. ENALAPRIL [Concomitant]
     Active Substance: ENALAPRIL
     Indication: Cardiovascular disorder
     Dosage: UNK
     Route: 048
     Dates: start: 20050505, end: 20050729
  30. CEFACLOR [Concomitant]
     Active Substance: CEFACLOR
     Indication: Anti-infective therapy
     Dosage: UNK
     Route: 048
     Dates: start: 20050610, end: 20050617
  31. ERYTHROMYCIN [Concomitant]
     Active Substance: ERYTHROMYCIN
     Indication: Anti-infective therapy
     Dosage: UNK
     Route: 048
     Dates: start: 20051005, end: 20051015
  32. ATROVENT [Concomitant]
     Active Substance: IPRATROPIUM BROMIDE
     Indication: Respiratory disorder
     Dosage: UNK
     Route: 050
     Dates: start: 2006, end: 2006
  33. ENOXAPARIN SODIUM [Concomitant]
     Active Substance: ENOXAPARIN SODIUM
     Indication: Thrombosis
     Dosage: UNK
     Route: 058
     Dates: start: 20070329, end: 20070330
  34. ASPIRIN [Concomitant]
     Active Substance: ASPIRIN
     Indication: Thrombosis
     Dosage: UNK
     Route: 048
     Dates: start: 20070330, end: 20081009
  35. GENTISONE HC EAR DROPS [Concomitant]
     Indication: Otitis externa
     Dosage: UNK
     Route: 065
     Dates: start: 20070430, end: 20070614
  36. SERETIDE [Concomitant]
     Active Substance: FLUTICASONE PROPIONATE\SALMETEROL XINAFOATE
     Indication: Respiratory disorder
     Dosage: UNK
     Route: 055
     Dates: start: 20070522, end: 2011
  37. MOVICOL [Concomitant]
     Active Substance: POLYETHYLENE GLYCOL 3350\POTASSIUM CHLORIDE\SODIUM BICARBONATE\SODIUM CHLORIDE
     Indication: Constipation
     Dosage: UNK
     Route: 048
     Dates: start: 20070927, end: 20071027
  38. OMEPRAZOLE [Concomitant]
     Active Substance: OMEPRAZOLE
     Indication: Gastrointestinal disorder
     Dosage: UNK
     Route: 048
     Dates: start: 20080319, end: 2011
  39. CEFUROXIME [Concomitant]
     Active Substance: CEFUROXIME
     Dosage: UNK
     Route: 042
     Dates: start: 20081006, end: 20081020
  40. CEFOTAXIME [Concomitant]
     Active Substance: CEFOTAXIME SODIUM
     Dosage: UNK
     Route: 042
     Dates: start: 20090804, end: 20090819
  41. CEFTAZIDIME [Concomitant]
     Active Substance: CEFTAZIDIME
     Indication: Dyspnoea
     Dosage: UNK
     Route: 042
     Dates: start: 20091028, end: 20091102
  42. TOBRAMYCIN [Concomitant]
     Active Substance: TOBRAMYCIN
     Indication: Anti-infective therapy
     Dosage: UNK
     Route: 042
     Dates: start: 20091029, end: 20091030
  43. MEROPENEM [Concomitant]
     Active Substance: MEROPENEM
     Indication: Anti-infective therapy
     Dosage: UNK
     Route: 042
     Dates: start: 20091102, end: 20091116
  44. AMOXICILLIN\CLAVULANATE POTASSIUM [Concomitant]
     Active Substance: AMOXICILLIN\CLAVULANATE POTASSIUM
     Indication: Anti-infective therapy
     Dosage: UNK
     Route: 048
     Dates: start: 201001, end: 201002
  45. Colomycin [Concomitant]
     Indication: Anti-infective therapy
     Dosage: UNK
     Route: 055
     Dates: start: 20100606, end: 20100701
  46. HEPARIN SODIUM [Concomitant]
     Active Substance: HEPARIN SODIUM
     Dosage: UNK
     Route: 042
     Dates: end: 20100704
  47. Hypertonic [Concomitant]
     Indication: Dyspnoea
     Dosage: UNK
     Route: 055
     Dates: start: 20100705, end: 20100706
  48. CARBAMAZEPINE [Concomitant]
     Active Substance: CARBAMAZEPINE
     Indication: Nervous system disorder
     Dosage: UNK
     Route: 065
     Dates: start: 20100824
  49. SODIUM CHLORIDE [Concomitant]
     Active Substance: SODIUM CHLORIDE
     Dosage: UNK
     Route: 055
     Dates: start: 201009, end: 2011
  50. MIDAZOLAM [Concomitant]
     Active Substance: MIDAZOLAM
     Indication: Seizure
     Dosage: UNK
     Route: 048
     Dates: start: 20100910, end: 20100910
  51. AMOROLFINE [Concomitant]
     Active Substance: AMOROLFINE
     Indication: Onychomycosis
     Dosage: UNK
     Route: 061
     Dates: start: 2011, end: 2011
  52. Calogen [Concomitant]
     Indication: Supplementation therapy
     Dosage: UNK
     Route: 065
     Dates: start: 2011
  53. CHLORPHENIRAMINE MALEATE [Concomitant]
     Active Substance: CHLORPHENIRAMINE MALEATE
     Indication: Premedication
  54. DIAZEPAM [Concomitant]
     Active Substance: DIAZEPAM
     Indication: Gastrostomy
     Dosage: UNK
     Route: 065
     Dates: start: 2011
  55. FENTANYL [Concomitant]
     Active Substance: FENTANYL
     Indication: Abdominal pain
     Dosage: UNK
     Route: 062
     Dates: start: 2011, end: 2011
  56. IBUPROFEN [Concomitant]
     Active Substance: IBUPROFEN
     Indication: Abdominal pain
     Dosage: UNK
     Route: 065
     Dates: start: 2011
  57. MORPHINE [Concomitant]
     Active Substance: MORPHINE
     Indication: Pain
  58. NALTREXONE [Concomitant]
     Active Substance: NALTREXONE
  59. OLIVE OIL [Concomitant]
     Active Substance: OLIVE OIL
     Route: 061
  60. SALMETEROL [Concomitant]
     Active Substance: SALMETEROL
     Indication: Bronchospasm
     Dosage: UNK
     Route: 055
     Dates: start: 2011
  61. BUTYLSCOPOLAMINE BROMIDE [Concomitant]
     Active Substance: BUTYLSCOPOLAMINE BROMIDE
     Indication: Abdominal pain
     Dosage: UNK
     Route: 065
     Dates: start: 20110118
  62. POTASSIUM CHLORIDE [Concomitant]
     Active Substance: POTASSIUM CHLORIDE
  63. MEBEVERINE [Concomitant]
     Active Substance: MEBEVERINE
     Indication: Abdominal pain
     Dosage: UNK
     Route: 065
     Dates: start: 20110127, end: 20110513
  64. ATRACURIUM [Concomitant]
     Active Substance: ATRACURIUM
     Indication: Hypoventilation
  65. TEICOPLANIN [Concomitant]
     Active Substance: TEICOPLANIN
     Indication: Lower respiratory tract infection
     Dosage: UNK
     Route: 042
     Dates: start: 20110215, end: 20110216
  66. FLUTICASONE [Concomitant]
     Active Substance: FLUTICASONE
     Indication: Wheezing
     Dosage: UNK
     Route: 055
     Dates: start: 20110216, end: 20110306
  67. Ametop [Concomitant]
     Indication: Analgesic therapy
     Dosage: UNK
     Route: 061
     Dates: start: 20110219, end: 20110219
  68. OSELTAMIVIR [Concomitant]
     Active Substance: OSELTAMIVIR
     Indication: Influenza B virus test
     Dosage: UNK
     Route: 065
     Dates: start: 20110219
  69. ROCURONIUM [Concomitant]
     Active Substance: ROCURONIUM BROMIDE
     Dosage: UNK
     Route: 042
     Dates: start: 20110219
  70. MICONAZOLE NITRATE [Concomitant]
     Active Substance: MICONAZOLE NITRATE
     Indication: Candida infection
     Dosage: UNK
     Route: 061
     Dates: start: 20110225, end: 20110302
  71. KETAMINE [Concomitant]
     Active Substance: KETAMINE
     Indication: Analgesic therapy
     Dosage: UNK
     Route: 042
     Dates: start: 20110303, end: 20110416
  72. SUCRALFATE [Concomitant]
     Active Substance: SUCRALFATE
     Dosage: UNK
     Route: 065
     Dates: start: 20110302, end: 20110325
  73. PEPPERMINT OIL [Concomitant]
     Active Substance: PEPPERMINT OIL
     Indication: Gastric disorder
     Dosage: UNK
     Route: 065
     Dates: start: 20111229, end: 201201
  74. TRIMEPRAZINE [Concomitant]
     Active Substance: TRIMEPRAZINE
     Indication: African trypanosomiasis
     Dosage: UNK
     Route: 065
     Dates: start: 2012
  75. CLONIDINE [Concomitant]
     Active Substance: CLONIDINE
     Dosage: UNK
     Route: 050
     Dates: start: 2011, end: 20110504

REACTIONS (4)
  - Device dislocation [Recovered/Resolved]
  - Umbilical hernia [Recovered/Resolved]
  - Weight gain poor [Recovered/Resolved]
  - Aspiration [Recovered/Resolved]

NARRATIVE: CASE EVENT DATE: 20081211
